FAERS Safety Report 4782778-0 (Version None)
Quarter: 2005Q3

REPORT INFORMATION
  Report Type: 
  Country: None (occurrence: None)
  Receive Date: 20050929
  Receipt Date: 20050920
  Transmission Date: 20060218
  Serious: Yes (Disabling)
  Sender: FDA-Public Use
  Company Number: GB-KINGPHARMUSA00001-K200501232

PATIENT
  Age: 27 Year
  Sex: Male

DRUGS (7)
  1. KEMADRIN [Suspect]
     Dosage: 10 MG, UNK
     Route: 048
     Dates: start: 19800701, end: 20030701
  2. FLUPENTIXOL [Suspect]
     Route: 054
     Dates: start: 19800701, end: 19990101
  3. LARGACTIL [Concomitant]
     Dates: start: 19800701, end: 20030701
  4. PIPOTHIAZINE [Concomitant]
     Dates: start: 19990101, end: 20030701
  5. BUPRENORPHINE HCL [Concomitant]
     Dates: start: 20050501
  6. DIAMORPHINE HYDROCHLORIDE [Concomitant]
     Dates: start: 20020501
  7. COCAINE [Concomitant]
     Dosage: UNK, UNK
     Dates: start: 20020501

REACTIONS (3)
  - DYSKINESIA [None]
  - PSORIASIS [None]
  - SKIN DISORDER [None]
